FAERS Safety Report 5758460-X (Version None)
Quarter: 2008Q2

REPORT INFORMATION
  Report Type: 
  Country: None (occurrence: None)
  Receive Date: 20080530
  Receipt Date: 20080516
  Transmission Date: 20081010
  Serious: Yes (Hospitalization)
  Sender: FDA-Public Use
  Company Number: 8032917

PATIENT
  Age: 68 Year
  Sex: Male

DRUGS (2)
  1. KEPPRA [Suspect]
  2. KEPPRA [Suspect]
     Dosage: 3000 MG /D

REACTIONS (1)
  - STATUS EPILEPTICUS [None]
